FAERS Safety Report 14432724 (Version 1)
Quarter: 2018Q1

REPORT INFORMATION
  Report Type: Spontaneous
  Country: US (occurrence: US)
  Receive Date: 20180124
  Receipt Date: 20180124
  Transmission Date: 20180509
  Serious: Yes (Hospitalization)
  Sender: FDA-Public Use
  Company Number: US-PERRIGO-18US000467

PATIENT
  Sex: Male
  Weight: 68.27 kg

DRUGS (3)
  1. LOPERAMIDE HYDROCHLORIDE. [Suspect]
     Active Substance: LOPERAMIDE HYDROCHLORIDE
     Indication: DIARRHOEA
     Dosage: 4 MG, 2-3 TIMES DAILY PRN
     Route: 048
     Dates: start: 2006, end: 20171231
  2. IMODIUM [Suspect]
     Active Substance: LOPERAMIDE HYDROCHLORIDE
     Indication: DIARRHOEA
     Dosage: 1 TABLET, BID PRN
     Route: 048
     Dates: start: 2006, end: 20171231
  3. ANTIHYPERTENSIVES [Suspect]
     Active Substance: UNSPECIFIED INGREDIENT
     Indication: HYPERTENSION
     Dosage: UNKNOWN, UNKNOWN
     Route: 048
     Dates: start: 2006

REACTIONS (6)
  - Intestinal obstruction [Recovered/Resolved]
  - Inappropriate schedule of drug administration [Recovered/Resolved]
  - Peripheral swelling [Not Recovered/Not Resolved]
  - Incorrect dose administered [Recovered/Resolved]
  - Blood creatinine increased [Unknown]
  - Urinary retention [Not Recovered/Not Resolved]

NARRATIVE: CASE EVENT DATE: 2006
